FAERS Safety Report 7628557-8 (Version None)
Quarter: 2011Q3

REPORT INFORMATION
  Report Type: 
  Country: None (occurrence: None)
  Receive Date: 20110722
  Receipt Date: 20110712
  Transmission Date: 20111222
  Serious: Yes (Hospitalization)
  Sender: FDA-Public Use
  Company Number: FR-EISAI INC-E3810-04802-SPO-FR

PATIENT
  Sex: Male

DRUGS (5)
  1. ASPIRIN [Suspect]
     Indication: CARDIOVASCULAR EVENT PROPHYLAXIS
     Route: 048
  2. ACIPHEX [Suspect]
     Route: 048
     Dates: end: 20110416
  3. AMLODIPINE BESYLATE AND OLMESARTAN MEDOXOMIL [Suspect]
     Indication: HYPERTENSION
     Route: 048
  4. BACTRIM [Suspect]
     Route: 048
     Dates: start: 20110404
  5. ESCITALOPRAM OXALATE [Suspect]
     Indication: DEPRESSION
     Route: 048
     Dates: start: 20110401

REACTIONS (4)
  - THROMBOCYTOPENIA [None]
  - JAUNDICE CHOLESTATIC [None]
  - RENAL FAILURE ACUTE [None]
  - ANAEMIA [None]
